FAERS Safety Report 7531199-6 (Version None)
Quarter: 2011Q2

REPORT INFORMATION
  Report Type: 
  Country: None (occurrence: None)
  Receive Date: 20110531
  Receipt Date: 20110519
  Transmission Date: 20111010
  Serious: Yes (Other)
  Sender: FDA-Public Use
  Company Number: B0720242A

PATIENT
  Age: 29 Year
  Sex: Female

DRUGS (2)
  1. FAMCICLOVIR [Concomitant]
  2. ACYCLOVIR [Suspect]
     Indication: RETINAL DISORDER

REACTIONS (3)
  - HYPERSENSITIVITY [None]
  - ANGIOEDEMA [None]
  - VISION BLURRED [None]
